FAERS Safety Report 8588435-7 (Version None)
Quarter: 2012Q3

REPORT INFORMATION
  Report Type: 
  Country: None (occurrence: None)
  Receive Date: 20120813
  Receipt Date: 20120807
  Transmission Date: 20120928
  Serious: No
  Sender: FDA-Public Use
  Company Number: US-PFIZER INC-2012167885

PATIENT
  Age: 44 Year
  Sex: Female
  Weight: 56.236 kg

DRUGS (12)
  1. MORPHINE SULFATE [Suspect]
     Indication: PAIN
  2. IBUPROFEN [Suspect]
     Dosage: 200 MG, AS NEEDED
  3. MOTRIN [Suspect]
     Dosage: UNK
  4. COMPAZINE [Suspect]
     Indication: NAUSEA
  5. TORADOL [Suspect]
  6. SUMATRIPTAN SUCCINATE [Suspect]
     Dosage: UNK
  7. REGLAN [Suspect]
     Dosage: UNK
  8. IMITREX [Suspect]
     Indication: MIGRAINE
     Dosage: UNK
  9. INAPSINE [Suspect]
  10. RISPERDAL [Suspect]
     Dosage: UNK
  11. CODEINE [Suspect]
  12. DROPERIDOL [Suspect]
     Dosage: UNK

REACTIONS (1)
  - DRUG HYPERSENSITIVITY [None]
